FAERS Safety Report 23400361 (Version 2)
Quarter: 2024Q1

REPORT INFORMATION
  Report Type: Report from Study
  Country: BR (occurrence: BR)
  Receive Date: 20240115
  Receipt Date: 20240131
  Transmission Date: 20240409
  Serious: Yes (Hospitalization, Other)
  Sender: FDA-Public Use
  Company Number: BR-ABBVIE-5584948

PATIENT
  Age: 39 Year
  Sex: Female
  Weight: 73 kg

DRUGS (7)
  1. HUMIRA [Suspect]
     Active Substance: ADALIMUMAB
     Indication: Psoriasis
     Dosage: FORM STRENGTH: 40 MILLIGRAM
     Route: 058
     Dates: start: 2022, end: 20231030
  2. LITHIUM [Concomitant]
     Active Substance: LITHIUM
     Indication: Depression
     Dosage: FORM STRENGTH: 300 MG
     Route: 048
  3. SERTRALINE [Concomitant]
     Active Substance: SERTRALINE HYDROCHLORIDE
     Indication: Depression
     Dosage: FORM STRENGTH: 25 MILLIGRAM
     Route: 048
  4. CHLORPROMAZINE [Concomitant]
     Active Substance: CHLORPROMAZINE
     Indication: Depression
  5. ENALAPRIL [Concomitant]
     Active Substance: ENALAPRIL
     Indication: Hypertension
     Dosage: FORM STRENGTH: 10 MILLIGRAM
     Route: 048
  6. Hydrochlorothiazide sar [Concomitant]
     Indication: Hypertension
     Dosage: FORM STRENGTH: 25 MILLIGRAM
     Route: 048
  7. CLONAZEPAM [Concomitant]
     Active Substance: CLONAZEPAM
     Indication: Depression

REACTIONS (18)
  - Burns third degree [Unknown]
  - Depression [Unknown]
  - Psoriasis [Not Recovered/Not Resolved]
  - Drug ineffective [Not Recovered/Not Resolved]
  - Emotional distress [Unknown]
  - Emotional disorder [Unknown]
  - Fall [Unknown]
  - Nervousness [Unknown]
  - Road traffic accident [Unknown]
  - Unevaluable event [Unknown]
  - Malnutrition [Unknown]
  - Illness [Unknown]
  - Stress [Unknown]
  - Crying [Unknown]
  - Haemorrhage [Not Recovered/Not Resolved]
  - Wound [Recovering/Resolving]
  - Dehydration [Unknown]
  - Weight increased [Unknown]

NARRATIVE: CASE EVENT DATE: 20211201
